FAERS Safety Report 11985301 (Version 1)
Quarter: 2016Q1

REPORT INFORMATION
  Report Type: Not Available
  Country: US (occurrence: US)
  Receive Date: 20160201
  Receipt Date: 20160201
  Transmission Date: 20160526
  Serious: No
  Sender: FDA-Public Use
  Company Number: US-ANIPHARMA-2015-US-000894

PATIENT
  Age: 43 Year
  Sex: Female

DRUGS (2)
  1. FLUVOXAMINE MALEATE 50 MG [Suspect]
     Active Substance: FLUVOXAMINE MALEATE
  2. FLUVOXAMINE MALEATE 25 MG [Suspect]
     Active Substance: FLUVOXAMINE MALEATE
     Dosage: 25 MG QD
     Route: 048
     Dates: start: 20151031

REACTIONS (1)
  - Drug ineffective [Unknown]

NARRATIVE: CASE EVENT DATE: 20151120
